FAERS Safety Report 18386993 (Version 1)
Quarter: 2020Q4

REPORT INFORMATION
  Report Type: Spontaneous
  Country: US (occurrence: US)
  Receive Date: 20201015
  Receipt Date: 20201015
  Transmission Date: 20210114
  Serious: Yes (Other)
  Sender: FDA-Public Use
  Company Number: None

PATIENT
  Age: 40 Year
  Sex: Female
  Weight: 72.9 kg

DRUGS (4)
  1. LAMOTRIGINE. [Concomitant]
     Active Substance: LAMOTRIGINE
  2. CITALOPRAM [Suspect]
     Active Substance: CITALOPRAM HYDROBROMIDE
     Indication: DEPRESSION
     Dosage: ?          QUANTITY:1 TABLET(S);?
     Route: 048
     Dates: start: 20180501
  3. TYLENOL [Concomitant]
     Active Substance: ACETAMINOPHEN
  4. PANTOPRAZOLE [Concomitant]
     Active Substance: PANTOPRAZOLE

REACTIONS (12)
  - Head discomfort [None]
  - Neck pain [None]
  - Hyperacusis [None]
  - Dizziness [None]
  - Neuralgia [None]
  - Panic attack [None]
  - Withdrawal syndrome [None]
  - Nausea [None]
  - Dyspepsia [None]
  - Headache [None]
  - Muscle tightness [None]
  - Tinnitus [None]

NARRATIVE: CASE EVENT DATE: 20200903
